FAERS Safety Report 14919041 (Version 1)
Quarter: 2018Q2

REPORT INFORMATION
  Report Type: Spontaneous
  Country: ZA (occurrence: ZA)
  Receive Date: 20180521
  Receipt Date: 20180521
  Transmission Date: 20180711
  Serious: Yes (Death, Other)
  Sender: FDA-Public Use
  Company Number: ZA-PFIZER INC-2018201886

PATIENT
  Age: 65 Year
  Sex: Male

DRUGS (7)
  1. NOVOMIX [Suspect]
     Active Substance: INSULIN ASPART
     Dosage: UNK
  2. AMLOC /00550802/ [Suspect]
     Active Substance: RANITIDINE HYDROCHLORIDE
     Dosage: UNK
  3. PURESIS [Suspect]
     Active Substance: FUROSEMIDE
     Dosage: UNK
  4. CIPLASYL [Suspect]
     Active Substance: PERINDOPRIL ERBUMINE
     Dosage: UNK
  5. ASPAVOR [Suspect]
     Active Substance: ATORVASTATIN
     Dosage: 20 MG, UNK
  6. GLUCOPHAGE XR [Suspect]
     Active Substance: METFORMIN HYDROCHLORIDE
     Dosage: UNK
  7. ECOTRIN [Suspect]
     Active Substance: ASPIRIN
     Dosage: UNK

REACTIONS (1)
  - Neoplasm malignant [Fatal]
